FAERS Safety Report 7583950-7 (Version None)
Quarter: 2011Q2

REPORT INFORMATION
  Report Type: 
  Country: None (occurrence: None)
  Receive Date: 20110630
  Receipt Date: 20110620
  Transmission Date: 20111010
  Serious: Yes (Hospitalization)
  Sender: FDA-Public Use
  Company Number: FR-JNJFOC-20110612388

PATIENT
  Sex: Female

DRUGS (8)
  1. ZOLPIDEM [Concomitant]
  2. TRAMADOL HCL [Suspect]
     Indication: ARTHRALGIA
     Route: 048
     Dates: start: 20110401, end: 20110502
  3. IPERTEN [Concomitant]
  4. ACETAMINOPHEN AND TRAMADOL HCL [Suspect]
     Indication: ARTHRALGIA
     Route: 048
     Dates: start: 20110425
  5. COOLMETEC [Suspect]
     Indication: HYPERTENSION
     Route: 048
  6. PANTOPRAZOLE [Concomitant]
  7. CORGARD [Concomitant]
  8. ASPIRIN [Concomitant]

REACTIONS (2)
  - INAPPROPRIATE ANTIDIURETIC HORMONE SECRETION [None]
  - HYPONATRAEMIA [None]
